FAERS Safety Report 4788051-9 (Version None)
Quarter: 2005Q4

REPORT INFORMATION
  Report Type: 
  Country: None (occurrence: None)
  Receive Date: 20051004
  Receipt Date: 20051004
  Transmission Date: 20060501
  Serious: No
  Sender: FDA-Public Use
  Company Number: None

PATIENT
  Age: 27 Year
  Sex: Male
  Weight: 74.8435 kg

DRUGS (3)
  1. CEFTRIAXONE [Suspect]
     Indication: LYME DISEASE
     Dosage: 2 GRAMS   Q24HRS  IV
     Route: 042
     Dates: start: 20050908, end: 20050924
  2. ZITHROMAX [Concomitant]
  3. ATOVAQUONE [Concomitant]

REACTIONS (8)
  - BURNING SENSATION [None]
  - CHEST DISCOMFORT [None]
  - CHEST PAIN [None]
  - DYSPNOEA [None]
  - PAIN IN EXTREMITY [None]
  - PARAESTHESIA [None]
  - RASH [None]
  - SKIN TIGHTNESS [None]
